FAERS Safety Report 20010583 (Version 1)
Quarter: 2021Q4

REPORT INFORMATION
  Report Type: Spontaneous
  Country: US (occurrence: US)
  Receive Date: 20211029
  Receipt Date: 20211029
  Transmission Date: 20220303
  Serious: Yes (unspecified)
  Sender: FDA-Public Use
  Company Number: None

PATIENT
  Age: 60 Year
  Sex: Female

DRUGS (1)
  1. REGEN-COV [Suspect]
     Active Substance: CASIRIVIMAB\IMDEVIMAB
     Indication: COVID-19
     Dosage: ?          OTHER DOSE:600MG/600MG MG;OTHER ROUTE:IV
     Dates: start: 20211027, end: 20211027

REACTIONS (5)
  - Myalgia [None]
  - Pyrexia [None]
  - Hypotension [None]
  - Syncope [None]
  - Tachycardia [None]

NARRATIVE: CASE EVENT DATE: 20211027
